FAERS Safety Report 14901273 (Version 4)
Quarter: 2019Q1

REPORT INFORMATION
  Report Type: Spontaneous
  Country: US (occurrence: US)
  Receive Date: 20180516
  Receipt Date: 20190327
  Transmission Date: 20190417
  Serious: Yes (Hospitalization, Other)
  Sender: FDA-Public Use
  Company Number: US-SA-2017SA223575

PATIENT
  Age: 50 Year
  Sex: Female

DRUGS (11)
  1. LEMTRADA [Suspect]
     Active Substance: ALEMTUZUMAB
     Indication: MULTIPLE SCLEROSIS
     Dosage: 12 MG,QD
     Route: 041
     Dates: start: 20171023, end: 20171027
  2. SUMATRIPTAN. [Concomitant]
     Active Substance: SUMATRIPTAN
  3. SOLIFENACIN SUCCINATE. [Concomitant]
     Active Substance: SOLIFENACIN SUCCINATE
  4. LEVOTHYROXINE. [Concomitant]
     Active Substance: LEVOTHYROXINE
     Dosage: 150 UG,QD
     Route: 065
     Dates: start: 201802
  5. ZOLMITRIPTAN. [Concomitant]
     Active Substance: ZOLMITRIPTAN
  6. BACLOFEN. [Concomitant]
     Active Substance: BACLOFEN
  7. IBUPROFEN. [Concomitant]
     Active Substance: IBUPROFEN
  8. AMANTADINE. [Concomitant]
     Active Substance: AMANTADINE HYDROCHLORIDE
  9. TIZANIDINE. [Concomitant]
     Active Substance: TIZANIDINE
  10. LEVOTHYROXINE. [Concomitant]
     Active Substance: LEVOTHYROXINE
     Dosage: UNK UNK,UNK
     Route: 065
  11. PAROXETINE. [Concomitant]
     Active Substance: PAROXETINE

REACTIONS (31)
  - Loss of consciousness [Recovered/Resolved]
  - Unresponsive to stimuli [Unknown]
  - Gingival bleeding [Recovered/Resolved]
  - Blood pressure increased [Unknown]
  - Blister [Not Recovered/Not Resolved]
  - Poor venous access [Recovered/Resolved]
  - Skin disorder [Not Recovered/Not Resolved]
  - Haemorrhage intracranial [Unknown]
  - Rash pruritic [Recovered/Resolved]
  - Urinary tract infection [Recovered/Resolved]
  - Pemphigoid [Not Recovered/Not Resolved]
  - Bronchitis [Recovered/Resolved]
  - Contusion [Not Recovered/Not Resolved]
  - Somnolence [Unknown]
  - Condition aggravated [Recovered/Resolved]
  - Incoherent [Recovered/Resolved]
  - Headache [Unknown]
  - Vomiting [Unknown]
  - Feeding tube user [Not Recovered/Not Resolved]
  - Platelet count abnormal [Not Recovered/Not Resolved]
  - Nasopharyngitis [Recovered/Resolved]
  - Hemiparesis [Unknown]
  - Autoimmune disorder [Unknown]
  - Cough [Recovered/Resolved]
  - Migraine [Recovered/Resolved]
  - Haemorrhagic stroke [Not Recovered/Not Resolved]
  - Dysphonia [Recovered/Resolved]
  - Thrombocytopenia [Unknown]
  - Disability [Recovered/Resolved]
  - Seizure [Not Recovered/Not Resolved]
  - Affective disorder [Unknown]

NARRATIVE: CASE EVENT DATE: 20171028
